FAERS Safety Report 11880469 (Version 8)
Quarter: 2016Q2

REPORT INFORMATION
  Report Type: Spontaneous
  Country: US (occurrence: US)
  Receive Date: 20151230
  Receipt Date: 20160421
  Transmission Date: 20160815
  Serious: Yes (Hospitalization)
  Sender: FDA-Public Use
  Company Number: US-PFIZER INC-2015475438

PATIENT
  Age: 57 Year
  Sex: Male
  Weight: 77 kg

DRUGS (4)
  1. VIAGRA [Suspect]
     Active Substance: SILDENAFIL CITRATE
     Dosage: 100 MG, 2X/DAY
     Route: 048
     Dates: start: 20151226, end: 20151226
  2. VIAGRA [Suspect]
     Active Substance: SILDENAFIL CITRATE
     Dosage: 100 MG, 3X/DAY
     Dates: start: 201512
  3. VIAGRA [Suspect]
     Active Substance: SILDENAFIL CITRATE
     Indication: ERECTILE DYSFUNCTION
     Dosage: 100 MG, ONCE BEFORE SEX
     Route: 048
     Dates: start: 20151225, end: 20151225
  4. VIAGRA [Suspect]
     Active Substance: SILDENAFIL CITRATE
     Dosage: 300 MG, DAILY (2 100MG TABLET ONCE, THEN 1 TABLET)
     Route: 048
     Dates: start: 20151227, end: 20151227

REACTIONS (5)
  - Drug ineffective [Not Recovered/Not Resolved]
  - Penile pain [Recovered/Resolved]
  - Intentional product use issue [Unknown]
  - Malaise [Unknown]
  - Dysuria [Recovered/Resolved]

NARRATIVE: CASE EVENT DATE: 201512
